FAERS Safety Report 12530696 (Version 1)
Quarter: 2016Q3

REPORT INFORMATION
  Report Type: Spontaneous
  Country: DE (occurrence: DE)
  Receive Date: 20160706
  Receipt Date: 20160706
  Transmission Date: 20161109
  Serious: Yes (Other)
  Sender: FDA-Public Use
  Company Number: DE-PFIZER INC-2016321814

PATIENT

DRUGS (2)
  1. KETAMINE HCL [Suspect]
     Active Substance: KETAMINE HYDROCHLORIDE
  2. KETANEST S [Suspect]
     Active Substance: ESKETAMINE

REACTIONS (2)
  - Drug abuse [Unknown]
  - Thrombocytopenia [Unknown]
